FAERS Safety Report 15209462 (Version 1)
Quarter: 2018Q3

REPORT INFORMATION
  Report Type: Spontaneous
  Country: GB (occurrence: GB)
  Receive Date: 20180727
  Receipt Date: 20180727
  Transmission Date: 20181010
  Serious: Yes (Hospitalization)
  Sender: FDA-Public Use
  Company Number: PHHY2018GB055540

PATIENT
  Age: 31 Year
  Sex: Female

DRUGS (2)
  1. SODIUM VALPROATE [Concomitant]
     Active Substance: VALPROATE SODIUM
     Indication: PRODUCT USED FOR UNKNOWN INDICATION
     Dosage: UNK
     Route: 065
  2. AMOXICILLIN. [Suspect]
     Active Substance: AMOXICILLIN
     Indication: ABSCESS
     Dosage: 1500 MG, QD
     Route: 048

REACTIONS (1)
  - Swollen tongue [Recovering/Resolving]

NARRATIVE: CASE EVENT DATE: 20180509
